FAERS Safety Report 13965180 (Version 1)
Quarter: 2017Q3

REPORT INFORMATION
  Report Type: Spontaneous
  Country: SG (occurrence: SG)
  Receive Date: 20170913
  Receipt Date: 20170913
  Transmission Date: 20171128
  Serious: Yes (Hospitalization, Other)
  Sender: FDA-Public Use
  Company Number: SG-ASTELLAS-2017US036581

PATIENT
  Age: 65 Year
  Sex: Female

DRUGS (7)
  1. METHYLPREDNISOLONE. [Suspect]
     Active Substance: METHYLPREDNISOLONE
     Indication: RENAL TRANSPLANT
     Dosage: 500 MG, UNKNOWN FREQ.(PREOPERATIVELY)
     Route: 042
  2. PREDNISOLONE. [Suspect]
     Active Substance: PREDNISOLONE
     Indication: RENAL TRANSPLANT
     Route: 048
  3. BASILIXIMAB [Suspect]
     Active Substance: BASILIXIMAB
     Indication: RENAL TRANSPLANT
     Dosage: 20 MG, UNKNOWN FREQ.(PREOPERATIVELY)
     Route: 042
  4. TACROLIMUS. [Suspect]
     Active Substance: TACROLIMUS
     Indication: RENAL TRANSPLANT
     Route: 065
  5. BASILIXIMAB [Suspect]
     Active Substance: BASILIXIMAB
     Dosage: 20 MG, UNKNOWN FREQ.(ON POST OPERATIVE DAY 4)
     Route: 042
  6. METHYLPREDNISOLONE. [Suspect]
     Active Substance: METHYLPREDNISOLONE
     Dosage: 500 MG, UNKNOWN FREQ.(ON POSTOPERATIVE DAY 1)
     Route: 042
  7. MYCOPHENOLATE MOFETIL. [Suspect]
     Active Substance: MYCOPHENOLATE MOFETIL
     Indication: RENAL TRANSPLANT
     Route: 065

REACTIONS (8)
  - Haematoma evacuation [Unknown]
  - Urinary tract infection [Recovered/Resolved]
  - Pneumonia [Unknown]
  - Acute myocardial infarction [Unknown]
  - Post procedural haemorrhage [Recovered/Resolved]
  - Escherichia bacteraemia [Recovered/Resolved]
  - Haematoma [Recovering/Resolving]
  - Ischaemic hepatitis [Unknown]
